FAERS Safety Report 8322589-2 (Version None)
Quarter: 2012Q2

REPORT INFORMATION
  Report Type: 
  Country: None (occurrence: None)
  Receive Date: 20120430
  Receipt Date: 20120420
  Transmission Date: 20120825
  Serious: Yes (Other)
  Sender: FDA-Public Use
  Company Number: CA-JNJFOC-20120409959

PATIENT
  Sex: Male
  Weight: 100.9 kg

DRUGS (4)
  1. REMICADE [Suspect]
     Indication: CROHN'S DISEASE
     Route: 042
     Dates: start: 20111116
  2. TOPICAL STEROID [Concomitant]
     Route: 061
  3. MORPHINE [Concomitant]
     Route: 061
  4. TYLENOL W/ CODEINE NO. 3 [Concomitant]
     Route: 065

REACTIONS (1)
  - FISTULA [None]
